FAERS Safety Report 16335908 (Version 1)
Quarter: 2019Q2

REPORT INFORMATION
  Report Type: Spontaneous
  Country: US (occurrence: US)
  Receive Date: 20190521
  Receipt Date: 20190521
  Transmission Date: 20190711
  Serious: Yes (Other)
  Sender: FDA-Public Use
  Company Number: US-GILEAD-2019-0408030

PATIENT
  Sex: Male

DRUGS (1)
  1. TRUVADA [Suspect]
     Active Substance: EMTRICITABINE\TENOFOVIR DISOPROXIL FUMARATE
     Indication: HIV INFECTION
     Dosage: UNK
     Route: 048
     Dates: start: 2004, end: 2015

REACTIONS (20)
  - Bone density decreased [Unknown]
  - Asthenia [Unknown]
  - Musculoskeletal pain [Unknown]
  - Pain in extremity [Unknown]
  - Lower limb fracture [Unknown]
  - Proteinuria [Unknown]
  - Dizziness [Unknown]
  - Renal impairment [Unknown]
  - Nephropathy [Unknown]
  - Pain [Not Recovered/Not Resolved]
  - Back pain [Unknown]
  - Arthralgia [Unknown]
  - Anxiety [Not Recovered/Not Resolved]
  - Emotional distress [Not Recovered/Not Resolved]
  - Pain in jaw [Unknown]
  - Anhedonia [Not Recovered/Not Resolved]
  - Spinal pain [Unknown]
  - Fatigue [Unknown]
  - Economic problem [Not Recovered/Not Resolved]
  - Renal pain [Unknown]
